FAERS Safety Report 23137712 (Version 5)
Quarter: 2024Q1

REPORT INFORMATION
  Report Type: Report from Study
  Country: US (occurrence: US)
  Receive Date: 20231102
  Receipt Date: 20240220
  Transmission Date: 20240410
  Serious: Yes (Other)
  Sender: FDA-Public Use
  Company Number: US-TAKEDA-2023TUS104924

PATIENT
  Sex: Male
  Weight: 46 kg

DRUGS (1)
  1. VEDOLIZUMAB [Suspect]
     Active Substance: VEDOLIZUMAB
     Indication: Crohn^s disease
     Dosage: 300 MILLIGRAM
     Route: 042
     Dates: start: 202306, end: 202310

REACTIONS (10)
  - Crohn^s disease [Unknown]
  - Haematochezia [Unknown]
  - Learning disability [Unknown]
  - Illness [Unknown]
  - Pallor [Unknown]
  - Irritability [Unknown]
  - Product dose omission issue [Unknown]
  - Weight decreased [Unknown]
  - Drug effect less than expected [Unknown]
  - Abdominal pain [Unknown]
